FAERS Safety Report 19496121 (Version 1)
Quarter: 2021Q3

REPORT INFORMATION
  Report Type: Spontaneous
  Country: US (occurrence: US)
  Receive Date: 20210701
  Receipt Date: 20210701
  Transmission Date: 20211014
  Serious: No
  Sender: FDA-Public Use
  Company Number: None

PATIENT
  Age: 29 Year
  Sex: Female
  Weight: 60.75 kg

DRUGS (1)
  1. BLACK GIRL SUNSCREEN SPF45 [Suspect]
     Active Substance: AVOBENZONE\HOMOSALATE\OCTISALATE\OCTOCRYLENE
     Indication: PROPHYLAXIS AGAINST SOLAR RADIATION
     Dosage: ?          OTHER STRENGTH:SPF;?
     Route: 061
     Dates: start: 20210614, end: 20210630

REACTIONS (2)
  - Product outer packaging issue [None]
  - Eye pain [None]

NARRATIVE: CASE EVENT DATE: 20210614
